FAERS Safety Report 22273724 (Version 1)
Quarter: 2023Q2

REPORT INFORMATION
  Report Type: Spontaneous
  Country: AU (occurrence: AU)
  Receive Date: 20230502
  Receipt Date: 20230502
  Transmission Date: 20230722
  Serious: Yes (Death, Other)
  Sender: FDA-Public Use
  Company Number: AU-Atnahs Limited-ATNAHS20230401331

PATIENT
  Sex: Female

DRUGS (5)
  1. DIAZEPAM [Suspect]
     Active Substance: DIAZEPAM
     Indication: Radiculopathy
  2. DIAZEPAM [Suspect]
     Active Substance: DIAZEPAM
     Indication: Neck pain
  3. MORPHINE SULFATE [Suspect]
     Active Substance: MORPHINE SULFATE
     Indication: Radiculopathy
  4. MORPHINE [Suspect]
     Active Substance: MORPHINE
     Indication: Breakthrough pain
  5. TAPENTADOL [Suspect]
     Active Substance: TAPENTADOL
     Indication: Radiculopathy

REACTIONS (3)
  - Respiratory arrest [Fatal]
  - Drug tolerance [Fatal]
  - Cardiac arrest [Fatal]
